FAERS Safety Report 17374737 (Version 1)
Quarter: 2020Q1

REPORT INFORMATION
  Report Type: Spontaneous
  Country: US (occurrence: US)
  Receive Date: 20200121
  Receipt Date: 20200121
  Transmission Date: 20200409
  Serious: Yes (Other)
  Sender: FDA-Public Use
  Company Number: None

PATIENT
  Age: 56 Year
  Sex: Female
  Weight: 77.11 kg

DRUGS (1)
  1. DRUG NOT SPECIFIED [Suspect]
     Active Substance: UNSPECIFIED INGREDIENT
     Indication: HYPERTENSION
     Dates: start: 20180219, end: 20180403

REACTIONS (4)
  - Abdominal discomfort [None]
  - Nausea [None]
  - Gastrooesophageal reflux disease [None]
  - Middle insomnia [None]

NARRATIVE: CASE EVENT DATE: 20180304
